FAERS Safety Report 7204235-4 (Version None)
Quarter: 2010Q4

REPORT INFORMATION
  Report Type: 
  Country: None (occurrence: None)
  Receive Date: 20101230
  Receipt Date: 20101221
  Transmission Date: 20110411
  Serious: Yes (Hospitalization, Disabling)
  Sender: FDA-Public Use
  Company Number: CH-ROCHE-746547

PATIENT
  Sex: Female
  Weight: 85 kg

DRUGS (1)
  1. BONIVA [Suspect]
     Indication: OSTEOPOROSIS
     Route: 048
     Dates: start: 20061017, end: 20101201

REACTIONS (2)
  - FEMUR FRACTURE [None]
  - LARYNGITIS [None]
